FAERS Safety Report 9333159 (Version 2)
Quarter: 2013Q3

REPORT INFORMATION
  Report Type: Spontaneous
  Country: US (occurrence: US)
  Receive Date: 20130606
  Receipt Date: 20130726
  Transmission Date: 20140515
  Serious: Yes (Other)
  Sender: FDA-Public Use
  Company Number: US-SANOFI-AVENTIS-2013SA056664

PATIENT
  Age: 52 Year
  Sex: Female

DRUGS (3)
  1. AUBAGIO [Suspect]
     Indication: MULTIPLE SCLEROSIS
     Route: 048
  2. AUBAGIO [Suspect]
     Indication: MULTIPLE SCLEROSIS
     Route: 048
     Dates: start: 20130107, end: 20130506
  3. HYDROCHLOROTHIAZIDE [Concomitant]
     Route: 065

REACTIONS (5)
  - Systemic lupus erythematosus [Unknown]
  - Arthralgia [Unknown]
  - Joint swelling [Unknown]
  - Rash [Not Recovered/Not Resolved]
  - Swelling [Not Recovered/Not Resolved]
